FAERS Safety Report 5858705-1 (Version None)
Quarter: 2008Q3

REPORT INFORMATION
  Report Type: 
  Country: None (occurrence: None)
  Receive Date: 20080826
  Receipt Date: 20080806
  Transmission Date: 20090109
  Serious: No
  Sender: FDA-Public Use
  Company Number: US-BOEHRINGER INGELHEIM GMBH, GERMANY-2007-BP-25241BP

PATIENT
  Age: 72 Year
  Sex: Female

DRUGS (6)
  1. SPIRIVA [Suspect]
     Indication: CHRONIC OBSTRUCTIVE PULMONARY DISEASE
     Route: 055
     Dates: start: 20060101
  2. VENTOLIN [Concomitant]
     Route: 055
  3. ALBUTEROL [Concomitant]
  4. ADVAIR DISKUS 100/50 [Concomitant]
  5. THEOPHYLLINE [Concomitant]
  6. SINGULAIR [Concomitant]

REACTIONS (2)
  - ALOPECIA [None]
  - INCORRECT ROUTE OF DRUG ADMINISTRATION [None]
